FAERS Safety Report 7249450-9 (Version None)
Quarter: 2011Q1

REPORT INFORMATION
  Report Type: 
  Country: None (occurrence: None)
  Receive Date: 20110128
  Receipt Date: 20101206
  Transmission Date: 20110831
  Serious: Yes (Other)
  Sender: FDA-Public Use
  Company Number: US-BAYER-201036936NA

PATIENT
  Sex: Female
  Weight: 79 kg

DRUGS (12)
  1. MOTRIN [Concomitant]
     Dosage: UNK
     Dates: start: 19900101
  2. CARVEDILOL [Concomitant]
     Dosage: UNK
     Dates: start: 20080101
  3. YAZ [Suspect]
     Indication: ANXIETY
  4. NAPROXEN [Concomitant]
     Dosage: UNK
     Dates: start: 20080301
  5. YAZ [Suspect]
     Indication: CONTRACEPTION
     Route: 048
     Dates: start: 20071110, end: 20081125
  6. IBUPROFEN [Concomitant]
     Dosage: UNK
     Dates: start: 19900101
  7. YAZ [Suspect]
     Indication: PREMENSTRUAL SYNDROME
  8. METFORMIN [Concomitant]
     Dosage: UNK
     Dates: start: 20080529
  9. BUSPIRONE [Concomitant]
     Indication: ANXIETY
     Dosage: UNK
     Dates: start: 20080314, end: 20080328
  10. ADVIL [Concomitant]
     Dosage: UNK
     Dates: start: 19900101
  11. KETOROLAC [Concomitant]
     Dosage: UNK
     Dates: start: 20080315
  12. LEVOTHYROXINE SODIUM [Concomitant]
     Indication: AUTOIMMUNE THYROIDITIS
     Dosage: UNK
     Dates: start: 20080101

REACTIONS (4)
  - GALLBLADDER DISORDER [None]
  - OBSESSIVE-COMPULSIVE DISORDER [None]
  - ANXIETY [None]
  - DEPRESSION [None]
